FAERS Safety Report 5303340-7 (Version None)
Quarter: 2007Q2

REPORT INFORMATION
  Report Type: 
  Country: None (occurrence: None)
  Receive Date: 20070420
  Receipt Date: 20070409
  Transmission Date: 20071010
  Serious: Yes (Hospitalization)
  Sender: FDA-Public Use
  Company Number: CG-MERCK-0704USA01408

PATIENT
  Age: 20 Year
  Sex: Male
  Weight: 66 kg

DRUGS (1)
  1. STROMECTOL [Suspect]
     Route: 048
     Dates: start: 20070120, end: 20070120

REACTIONS (6)
  - AGITATION [None]
  - ASTHENIA [None]
  - HEADACHE [None]
  - LOSS OF CONSCIOUSNESS [None]
  - OCULAR HYPERAEMIA [None]
  - PYREXIA [None]
